FAERS Safety Report 23059687 (Version 1)
Quarter: 2023Q4

REPORT INFORMATION
  Report Type: Spontaneous
  Country: ES (occurrence: ES)
  Receive Date: 20231012
  Receipt Date: 20231012
  Transmission Date: 20240110
  Serious: Yes (Life-Threatening, Hospitalization, Other)
  Sender: FDA-Public Use
  Company Number: ES-EMA-DD-20231003-7410135-175325

PATIENT
  Age: 13 Year
  Sex: Male

DRUGS (3)
  1. BICALUTAMIDE [Interacting]
     Active Substance: BICALUTAMIDE
     Indication: Transgender hormonal therapy
     Dosage: UNK
     Route: 065
  2. TACROLIMUS [Interacting]
     Active Substance: TACROLIMUS
     Indication: Dermatitis atopic
     Dosage: UNK
     Route: 061
  3. DIENOGEST\ESTRADIOL [Concomitant]
     Active Substance: DIENOGEST\ESTRADIOL
     Indication: Transgender hormonal therapy
     Dosage: UNK
     Route: 065

REACTIONS (6)
  - Haemodynamic instability [Recovered/Resolved]
  - Torsade de pointes [Recovered/Resolved]
  - Respiratory depression [Recovered/Resolved]
  - Ventricular tachycardia [Recovered/Resolved]
  - Drug interaction [Recovered/Resolved]
  - Electrocardiogram QT prolonged [Recovered/Resolved]
